FAERS Safety Report 5256968-7 (Version None)
Quarter: 2007Q1

REPORT INFORMATION
  Report Type: 
  Country: None (occurrence: None)
  Receive Date: 20070305
  Receipt Date: 20070305
  Transmission Date: 20070707
  Serious: Yes (Hospitalization)
  Sender: FDA-Public Use
  Company Number: None

PATIENT
  Age: 62 Year
  Sex: Male
  Weight: 82 kg

DRUGS (1)
  1. FERROUS SULFATE 325MG EC TAB [Suspect]
     Dosage: TAKE ONE TABLET TWICE A DAY PO
     Route: 048

REACTIONS (7)
  - ALCOHOL USE [None]
  - ANAEMIA [None]
  - CHEST DISCOMFORT [None]
  - GASTRIC ULCER [None]
  - GASTRITIS EROSIVE [None]
  - GASTROINTESTINAL HAEMORRHAGE [None]
  - PLATELET COUNT DECREASED [None]
